FAERS Safety Report 5093693-X (Version None)
Quarter: 2006Q3

REPORT INFORMATION
  Report Type: 
  Country: None (occurrence: None)
  Receive Date: 20060831
  Receipt Date: 20060822
  Transmission Date: 20061208
  Serious: Yes (Death, Other)
  Sender: FDA-Public Use
  Company Number: US-BAYER-200613565BCC

PATIENT
  Sex: Male

DRUGS (1)
  1. ORIGINAL ALKA SELTZER TABLETS [Suspect]
     Indication: DRUG USE FOR UNKNOWN INDICATION
     Route: 048

REACTIONS (3)
  - DEATH [None]
  - GASTRIC DISORDER [None]
  - GASTRIC PERFORATION [None]
